FAERS Safety Report 8597442-X (Version None)
Quarter: 2012Q3

REPORT INFORMATION
  Report Type: 
  Country: None (occurrence: None)
  Receive Date: 20120816
  Receipt Date: 20120807
  Transmission Date: 20120928
  Serious: Yes (Other)
  Sender: FDA-Public Use
  Company Number: US-JNJFOC-20120805168

PATIENT

DRUGS (7)
  1. CYTARABINE [Suspect]
     Indication: ACUTE LYMPHOCYTIC LEUKAEMIA
     Dosage: ON DAY 1 OR DAYS 8, 15 AND 22
     Route: 037
  2. DEXAMETHASONE [Suspect]
     Indication: ACUTE LYMPHOCYTIC LEUKAEMIA
     Dosage: DIVIDED INTO 2 DOSES WAS GIVEN ORALLY FOR 14 CONSECUTIVE DAYS
     Route: 048
  3. METHOTREXATE [Suspect]
     Indication: ACUTE LYMPHOCYTIC LEUKAEMIA
     Dosage: ON DAY 15 OR DAYS 8, 15 AND 22
     Route: 037
  4. VINCRISTINE [Suspect]
     Indication: ACUTE LYMPHOCYTIC LEUKAEMIA
     Dosage: 2 MG MAXIMUM DOSE BY PUSH ON DAY 1, DAYS 8, 15 AND 22
     Route: 042
  5. DOXORUBICIN HYDROCHLORIDE [Suspect]
     Indication: ACUTE LYMPHOCYTIC LEUKAEMIA
     Dosage: OVER 15-30 MINUTES ON DAY 1
     Route: 042
  6. PEG-ASPARAGINASE [Suspect]
     Indication: ACUTE LYMPHOCYTIC LEUKAEMIA
     Dosage: 2500 UNITS/M2/DOSE WAS GIVEN AS 4 WEEKLY DOSES.
     Route: 030
  7. BORTEZOMIB [Suspect]
     Indication: ACUTE LYMPHOCYTIC LEUKAEMIA
     Dosage: BY PUSH ON DAYS 1, 4, 8, AND 11.
     Route: 042

REACTIONS (3)
  - ENCEPHALOPATHY [None]
  - ADRENAL INSUFFICIENCY [None]
  - OFF LABEL USE [None]
